FAERS Safety Report 12110882 (Version 2)
Quarter: 2018Q2

REPORT INFORMATION
  Report Type: Spontaneous
  Country: BR (occurrence: BR)
  Receive Date: 20160224
  Receipt Date: 20180411
  Transmission Date: 20180711
  Serious: Yes (Other)
  Sender: FDA-Public Use
  Company Number: BR-JNJFOC-20160218134

PATIENT
  Sex: Female

DRUGS (9)
  1. INFLIXIMAB, RECOMBINANT [Suspect]
     Active Substance: INFLIXIMAB
     Indication: RHEUMATOID ARTHRITIS
     Route: 042
     Dates: start: 2015
  2. INFLIXIMAB, RECOMBINANT [Suspect]
     Active Substance: INFLIXIMAB
     Indication: RHEUMATOID ARTHRITIS
     Route: 042
  3. METHOTREXATE. [Concomitant]
     Active Substance: METHOTREXATE
     Route: 065
  4. PANTOPRAZOLE [Concomitant]
     Active Substance: PANTOPRAZOLE
     Route: 065
  5. VITAMIN D [Concomitant]
     Active Substance: CHOLECALCIFEROL
     Route: 065
  6. FOLIC ACID. [Concomitant]
     Active Substance: FOLIC ACID
     Route: 065
  7. LEVOTHYROXINE. [Concomitant]
     Active Substance: LEVOTHYROXINE
     Route: 065
  8. VENALOT [Concomitant]
     Active Substance: COUMARIN\TROXERUTIN
     Route: 065
  9. INFLIXIMAB, RECOMBINANT [Suspect]
     Active Substance: INFLIXIMAB
     Indication: RHEUMATOID ARTHRITIS
     Route: 042
     Dates: start: 20151215

REACTIONS (4)
  - Rheumatoid arthritis [Not Recovered/Not Resolved]
  - Inappropriate schedule of drug administration [Unknown]
  - Spinal disorder [Not Recovered/Not Resolved]
  - Osteoarthritis [Unknown]

NARRATIVE: CASE EVENT DATE: 2017
